FAERS Safety Report 6526365-2 (Version None)
Quarter: 2009Q4

REPORT INFORMATION
  Report Type: 
  Country: None (occurrence: None)
  Receive Date: 20091228
  Receipt Date: 20091214
  Transmission Date: 20100525
  Serious: Yes (Other)
  Sender: FDA-Public Use
  Company Number: 1-20978838

PATIENT
  Age: 65 Year
  Sex: Female
  Weight: 56.6996 kg

DRUGS (1)
  1. CLOTRIMAZOLE AND BETAMETHASONE DIPROPIONATE [Suspect]
     Indication: FUNGAL RHINITIS
     Dosage: 4 TIMES DAILY, NASAL
     Route: 045
     Dates: start: 20091101

REACTIONS (10)
  - ACCIDENTAL EXPOSURE [None]
  - ADRENAL INSUFFICIENCY [None]
  - FATIGUE [None]
  - GLOSSODYNIA [None]
  - MUCOSAL DRYNESS [None]
  - MYALGIA [None]
  - NASAL DRYNESS [None]
  - NERVOUSNESS [None]
  - PALPITATIONS [None]
  - SALIVARY HYPERSECRETION [None]
